FAERS Safety Report 24120686 (Version 1)
Quarter: 2024Q3

REPORT INFORMATION
  Report Type: Spontaneous
  Country: US (occurrence: US)
  Receive Date: 20240722
  Receipt Date: 20240722
  Transmission Date: 20241017
  Serious: Yes (Disabling, Other)
  Sender: BRECKENRIDGE
  Company Number: US-Breckenridge Pharmaceutical, Inc.-2159334

PATIENT
  Age: 41 Year
  Sex: Male
  Weight: 113.64 kg

DRUGS (2)
  1. DULOXETINE HYDROCHLORIDE [Suspect]
     Active Substance: DULOXETINE HYDROCHLORIDE
     Indication: Schizophrenia
     Route: 048
  2. RISPERIDONE [Concomitant]
     Active Substance: RISPERIDONE

REACTIONS (7)
  - Dizziness [Unknown]
  - Product prescribing issue [Unknown]
  - Drug interaction [Unknown]
  - Initial insomnia [Unknown]
  - Hallucination, auditory [Unknown]
  - Ejaculation delayed [Unknown]
  - Somnolence [Unknown]
